FAERS Safety Report 5663534-8 (Version None)
Quarter: 2008Q1

REPORT INFORMATION
  Report Type: 
  Country: None (occurrence: None)
  Receive Date: 20080307
  Receipt Date: 20080226
  Transmission Date: 20080703
  Serious: Yes (Life-Threatening, Hospitalization, Other)
  Sender: FDA-Public Use
  Company Number: 2008S1003264

PATIENT
  Age: 9 Month
  Sex: Female
  Weight: 6.804 kg

DRUGS (1)
  1. FENTANYL TRANSDERMAL SYSTEM [Suspect]
     Dosage: 12 UG;ONCE;BUCCAL
     Route: 002
     Dates: start: 20080215, end: 20080215

REACTIONS (3)
  - ACCIDENTAL DRUG INTAKE BY CHILD [None]
  - CONVULSION [None]
  - RESPIRATORY DISTRESS [None]
